FAERS Safety Report 15805610 (Version 1)
Quarter: 2019Q1

REPORT INFORMATION
  Report Type: Report from Study
  Country: GB (occurrence: GB)
  Receive Date: 20190110
  Receipt Date: 20190110
  Transmission Date: 20190417
  Serious: Yes (Hospitalization)
  Sender: FDA-Public Use
  Company Number: GB-CELLTRION INC.-2019GB017782

PATIENT

DRUGS (8)
  1. TRUXIMA [Suspect]
     Active Substance: RITUXIMAB-ABBS
     Dosage: 700 MG
     Route: 042
     Dates: start: 20171205, end: 20171205
  2. TRUXIMA [Suspect]
     Active Substance: RITUXIMAB-ABBS
     Dosage: 700 MG
     Route: 042
     Dates: start: 20171228, end: 20171228
  3. TRUXIMA [Suspect]
     Active Substance: RITUXIMAB-ABBS
     Indication: DIFFUSE LARGE B-CELL LYMPHOMA
     Dosage: 700 MG
     Route: 042
     Dates: start: 20171024, end: 20171024
  4. TRUXIMA [Suspect]
     Active Substance: RITUXIMAB-ABBS
     Dosage: 700 MG
     Route: 042
     Dates: start: 20171024, end: 20171024
  5. TRUXIMA [Suspect]
     Active Substance: RITUXIMAB-ABBS
     Dosage: 700 MG
     Route: 042
     Dates: start: 20171205, end: 20171205
  6. TRUXIMA [Suspect]
     Active Substance: RITUXIMAB-ABBS
     Dosage: 700 MG
     Route: 042
     Dates: start: 20171228, end: 20171228
  7. TRUXIMA [Suspect]
     Active Substance: RITUXIMAB-ABBS
     Dosage: 600 MG
     Route: 042
     Dates: start: 20180118, end: 20180118
  8. TRUXIMA [Suspect]
     Active Substance: RITUXIMAB-ABBS
     Dosage: 600 MG
     Route: 042
     Dates: start: 20180118, end: 20180118

REACTIONS (3)
  - Muscular weakness [Recovered/Resolved]
  - Neutropenic sepsis [Recovered/Resolved]
  - Diarrhoea [Recovered/Resolved]

NARRATIVE: CASE EVENT DATE: 20171105
